FAERS Safety Report 7349414-0 (Version None)
Quarter: 2011Q1

REPORT INFORMATION
  Report Type: 
  Country: None (occurrence: None)
  Receive Date: 20110314
  Receipt Date: 20100916
  Transmission Date: 20110831
  Serious: No
  Sender: FDA-Public Use
  Company Number: A0883261A

PATIENT
  Age: 14 Year
  Sex: Male
  Weight: 70.5 kg

DRUGS (1)
  1. AMOXICILLIN [Suspect]
     Dosage: 500MG THREE TIMES PER DAY
     Route: 048

REACTIONS (1)
  - RASH [None]
